FAERS Safety Report 25571778 (Version 6)
Quarter: 2025Q4

REPORT INFORMATION
  Report Type: Spontaneous
  Country: JP (occurrence: JP)
  Receive Date: 20250717
  Receipt Date: 20251121
  Transmission Date: 20260117
  Serious: Yes (Hospitalization, Other)
  Sender: BRISTOL-MYERS SQUIBB COMPANY
  Company Number: JP-ONO-2025JP007090

PATIENT
  Age: 68 Year
  Sex: Female
  Weight: 57.7 kg

DRUGS (2)
  1. OPDIVO [Suspect]
     Active Substance: NIVOLUMAB
     Indication: Malignant neoplasm of unknown primary site
     Dosage: 480 MG
     Route: 041
     Dates: start: 20250226, end: 20250327
  2. LOXOPROFEN [Suspect]
     Active Substance: LOXOPROFEN
     Indication: Product used for unknown indication
     Dosage: 60 MG, Q8H
     Dates: start: 20250219, end: 20250514

REACTIONS (4)
  - Pulmonary artery thrombosis [Recovered/Resolved]
  - Nephropathy toxic [Recovered/Resolved]
  - Interstitial lung disease [Recovered/Resolved]
  - Immune-mediated hepatitis [Recovered/Resolved]

NARRATIVE: CASE EVENT DATE: 20250409
